FAERS Safety Report 19212422 (Version 2)
Quarter: 2021Q2

REPORT INFORMATION
  Report Type: Spontaneous
  Country: US (occurrence: US)
  Receive Date: 20210504
  Receipt Date: 20210602
  Transmission Date: 20210717
  Serious: Yes (Other)
  Sender: FDA-Public Use
  Company Number: US-ASTRAZENECA-2021A360995

PATIENT
  Age: 15 Year
  Sex: Female
  Weight: 77.9 kg

DRUGS (3)
  1. KOSELUGO [Suspect]
     Active Substance: SELUMETINIB
     Indication: NEUROFIBROMA
     Dosage: 45.0MG UNKNOWN
     Route: 048
     Dates: start: 20210226
  2. ZOFRAN [Concomitant]
     Active Substance: ONDANSETRON HYDROCHLORIDE
     Indication: NAUSEA
     Dosage: 8MG PRN
  3. NEXPLANON [Concomitant]
     Active Substance: ETONOGESTREL
     Dates: start: 20201111

REACTIONS (1)
  - Intracranial pressure increased [Unknown]

NARRATIVE: CASE EVENT DATE: 20210412
